FAERS Safety Report 6535461-5 (Version None)
Quarter: 2010Q1

REPORT INFORMATION
  Report Type: 
  Country: None (occurrence: None)
  Receive Date: 20100113
  Receipt Date: 20100111
  Transmission Date: 20100710
  Serious: Yes (Other)
  Sender: FDA-Public Use
  Company Number: FR-SANOFI-AVENTIS-2010SA001317

PATIENT
  Age: 42 Year
  Sex: Male

DRUGS (2)
  1. KETEK [Suspect]
     Indication: DRUG USE FOR UNKNOWN INDICATION
     Route: 048
     Dates: start: 20091130, end: 20091204
  2. OSELTAMIVIR [Suspect]
     Indication: DRUG USE FOR UNKNOWN INDICATION
     Route: 048
     Dates: start: 20091123, end: 20091127

REACTIONS (5)
  - ASTHENIA [None]
  - DYSAESTHESIA [None]
  - FACIAL PALSY [None]
  - PARAESTHESIA [None]
  - VISION BLURRED [None]
